FAERS Safety Report 21173939 (Version 1)
Quarter: 2022Q3

REPORT INFORMATION
  Report Type: Spontaneous
  Country: US (occurrence: US)
  Receive Date: 20220804
  Receipt Date: 20220804
  Transmission Date: 20221027
  Serious: No
  Sender: FDA-Public Use
  Company Number: US-ABBVIE-22K-163-4452536-00

PATIENT
  Sex: Male
  Weight: 102.60 kg

DRUGS (5)
  1. DEPAKOTE ER [Suspect]
     Active Substance: DIVALPROEX SODIUM
     Indication: Product used for unknown indication
     Route: 065
  2. RISPERIDONE [Suspect]
     Active Substance: RISPERIDONE
     Indication: Product used for unknown indication
     Route: 065
  3. KEPPRA [Concomitant]
     Active Substance: LEVETIRACETAM
     Indication: Seizure
  4. ZONEGRAN [Concomitant]
     Active Substance: ZONISAMIDE
     Indication: Seizure
  5. VIMPAT [Concomitant]
     Active Substance: LACOSAMIDE
     Indication: Seizure

REACTIONS (6)
  - Somnolence [Unknown]
  - Unevaluable event [Unknown]
  - Aggression [Unknown]
  - Agitation [Unknown]
  - Irritability [Unknown]
  - Drug ineffective [Unknown]
